FAERS Safety Report 20437987 (Version 4)
Quarter: 2022Q1

REPORT INFORMATION
  Report Type: Spontaneous
  Country: ES (occurrence: ES)
  Receive Date: 20220207
  Receipt Date: 20220303
  Transmission Date: 20220423
  Serious: Yes (Life-Threatening, Hospitalization, Other)
  Sender: FDA-Public Use
  Company Number: ES-TAKEDA-2022TUS006243

PATIENT
  Age: 76 Year
  Sex: Female
  Weight: 79 kg

DRUGS (9)
  1. TAKHZYRO [Suspect]
     Active Substance: LANADELUMAB-FLYO
     Indication: Hereditary angioedema
     Dosage: 300 MG/2 ML, Q2WEEKS
     Route: 058
     Dates: start: 20211126, end: 20220120
  2. TAKHZYRO [Suspect]
     Active Substance: LANADELUMAB-FLYO
     Dosage: 300 MG/2 ML, Q2WEEKS
     Route: 058
     Dates: start: 20211126
  3. METFORMIN HYDROCHLORIDE [Concomitant]
     Active Substance: METFORMIN HYDROCHLORIDE
     Indication: Type 2 diabetes mellitus
     Dosage: 425 MILLIGRAM, QD
     Route: 048
     Dates: start: 20200415
  4. CHLORTHALIDONE [Concomitant]
     Active Substance: CHLORTHALIDONE
     Indication: Type 2 diabetes mellitus
     Dosage: 25 MILLIGRAM, QD
     Route: 048
     Dates: start: 20180518
  5. CHLORTHALIDONE [Concomitant]
     Active Substance: CHLORTHALIDONE
     Indication: Hypertension
  6. SYMBICORT [Concomitant]
     Active Substance: BUDESONIDE\FORMOTEROL FUMARATE DIHYDRATE
     Dosage: 160 MICROGRAM, BID
     Route: 055
     Dates: start: 20110323
  7. BILASTINE [Concomitant]
     Active Substance: BILASTINE
     Indication: Cough
     Dosage: 20 MILLIGRAM
     Route: 048
     Dates: start: 20190510
  8. ACETAMINOPHEN [Concomitant]
     Active Substance: ACETAMINOPHEN
     Indication: Pharyngitis
     Dosage: 1 GRAM
     Route: 048
     Dates: start: 20040811
  9. VENTOLIN [Concomitant]
     Active Substance: ALBUTEROL SULFATE
     Indication: Asthma
     Dosage: 100 MICROGRAM
     Route: 050
     Dates: start: 20200404

REACTIONS (1)
  - Pulmonary embolism [Recovering/Resolving]

NARRATIVE: CASE EVENT DATE: 20220114
